FAERS Safety Report 15658516 (Version 3)
Quarter: 2020Q3

REPORT INFORMATION
  Report Type: Report from Study
  Country: DE (occurrence: DE)
  Receive Date: 20181126
  Receipt Date: 20200902
  Transmission Date: 20201102
  Serious: Yes (Hospitalization, Disabling, Other)
  Sender: FDA-Public Use
  Company Number: DE-SA-2017SA132611

PATIENT

DRUGS (2)
  1. ALEMTUZUMAB [Suspect]
     Active Substance: ALEMTUZUMAB
     Indication: MULTIPLE SCLEROSIS
     Dosage: 12 MG,QD
     Route: 041
     Dates: start: 20170627, end: 20170629
  2. ALEMTUZUMAB [Suspect]
     Active Substance: ALEMTUZUMAB
     Dosage: 12 MG, QD
     Route: 041
     Dates: start: 20160620, end: 20160624

REACTIONS (18)
  - Procedural pain [Recovering/Resolving]
  - Thyroid function test abnormal [Not Recovered/Not Resolved]
  - Insomnia [Not Recovered/Not Resolved]
  - Weight decreased [Unknown]
  - Palpitations [Unknown]
  - Tonsillectomy [Recovering/Resolving]
  - Bronchitis [Unknown]
  - Headache [Recovered/Resolved]
  - Rash [Recovering/Resolving]
  - Sensory disturbance [Unknown]
  - Pain [Recovered/Resolved]
  - Infrequent bowel movements [Unknown]
  - Enlarged uvula [Recovering/Resolving]
  - Fatigue [Unknown]
  - Sleep paralysis [Unknown]
  - Hypoaesthesia [Unknown]
  - Urinary retention [Unknown]
  - Intervertebral disc protrusion [Unknown]

NARRATIVE: CASE EVENT DATE: 201706
